FAERS Safety Report 9742068 (Version 1)
Quarter: 2013Q4

REPORT INFORMATION
  Report Type: Spontaneous
  Country: US (occurrence: US)
  Receive Date: 20131210
  Receipt Date: 20131210
  Transmission Date: 20140711
  Serious: Yes (Other)
  Sender: FDA-Public Use
  Company Number: US-CELGENEUS-163-21880-13115963

PATIENT
  Sex: Female

DRUGS (1)
  1. REVLIMID [Suspect]
     Indication: MALIGNANT LYMPHOID NEOPLASM
     Dosage: 10 MILLIGRAM
     Route: 048
     Dates: start: 20130730

REACTIONS (1)
  - Neoplasm malignant [Unknown]
